FAERS Safety Report 23592234 (Version 11)
Quarter: 2025Q1

REPORT INFORMATION
  Report Type: Spontaneous
  Country: US (occurrence: US)
  Receive Date: 20240304
  Receipt Date: 20250314
  Transmission Date: 20250408
  Serious: No
  Sender: PFIZER
  Company Number: US-PFIZER INC-202300299006

PATIENT
  Age: 75 Year
  Sex: Female
  Weight: 58.967 kg

DRUGS (2)
  1. PREMARIN [Suspect]
     Active Substance: ESTROGENS, CONJUGATED
     Indication: Hormone replacement therapy
  2. PREMARIN [Suspect]
     Active Substance: ESTROGENS, CONJUGATED

REACTIONS (4)
  - Anxiety [Unknown]
  - Product dispensing error [Unknown]
  - Product prescribing error [Unknown]
  - Intentional dose omission [Unknown]
